FAERS Safety Report 5703039-9 (Version None)
Quarter: 2008Q2

REPORT INFORMATION
  Report Type: 
  Country: None (occurrence: None)
  Receive Date: 20080411
  Receipt Date: 20080410
  Transmission Date: 20081010
  Serious: Yes (Hospitalization)
  Sender: FDA-Public Use
  Company Number: A0722103A

PATIENT
  Age: 40 Year
  Sex: Male

DRUGS (15)
  1. ALLI [Suspect]
     Route: 048
     Dates: start: 20080101, end: 20080409
  2. GLYBURIDE [Concomitant]
  3. LANTUS [Concomitant]
     Route: 058
  4. NOVOLOG [Concomitant]
     Route: 058
  5. AMLODIPINE BESYLATE [Concomitant]
  6. LISINOPRIL [Concomitant]
  7. NEURONTIN [Concomitant]
  8. LOVASTATIN [Concomitant]
  9. LOPID [Concomitant]
  10. FOLIC ACID [Concomitant]
  11. TRAMADOL HCL [Concomitant]
  12. CITALOPRAM HYDROBROMIDE [Concomitant]
  13. SEROQUEL [Concomitant]
  14. LAMICTAL [Concomitant]
  15. AMBIEN [Concomitant]

REACTIONS (6)
  - ABDOMINAL PAIN UPPER [None]
  - CYSTIC FIBROSIS PANCREATIC [None]
  - DYSPEPSIA [None]
  - FLATULENCE [None]
  - PNEUMONIA [None]
  - RECTAL DISCHARGE [None]
